FAERS Safety Report 4525770-3 (Version None)
Quarter: 2004Q4

REPORT INFORMATION
  Report Type: 
  Country: None (occurrence: None)
  Receive Date: 20041213
  Receipt Date: 20041203
  Transmission Date: 20050328
  Serious: Yes (Hospitalization)
  Sender: FDA-Public Use
  Company Number: FR-ABBOTT-04P-056-0282423-00

PATIENT
  Age: 82 Year
  Sex: Male

DRUGS (3)
  1. DEPAKENE [Suspect]
     Indication: CLONIC CONVULSION
     Route: 048
     Dates: start: 20040701, end: 20041001
  2. DEPAKENE [Suspect]
     Route: 048
     Dates: start: 20041001
  3. DIAZEPAM [Suspect]
     Indication: CLONIC CONVULSION
     Route: 048
     Dates: start: 20041001

REACTIONS (6)
  - COMA [None]
  - CONFUSIONAL STATE [None]
  - DELUSION [None]
  - DIFFICULTY IN WALKING [None]
  - DISORIENTATION [None]
  - DRUG LEVEL INCREASED [None]
